FAERS Safety Report 10628387 (Version 1)
Quarter: 2014Q4

REPORT INFORMATION
  Report Type: Spontaneous
  Country: US (occurrence: US)
  Receive Date: 20141205
  Receipt Date: 20141205
  Transmission Date: 20150529
  Serious: No
  Sender: FDA-Public Use
  Company Number: US-BRISTOL-MYERS SQUIBB COMPANY-21312285

PATIENT
  Age: 59 Year
  Sex: Female
  Weight: 67.57 kg

DRUGS (2)
  1. ABILIFY [Suspect]
     Active Substance: ARIPIPRAZOLE
     Indication: HYPOMANIA
     Dosage: ABILIFY 7.5 MG AND DOSE HIGHER THAN 7.5MG
  2. ABILIFY [Suspect]
     Active Substance: ARIPIPRAZOLE
     Indication: BIPOLAR DISORDER
     Dosage: ABILIFY 7.5 MG AND DOSE HIGHER THAN 7.5MG

REACTIONS (4)
  - Malaise [Unknown]
  - Pruritus [Unknown]
  - Burning sensation [Unknown]
  - Wrong technique in drug usage process [Unknown]
